FAERS Safety Report 24279218 (Version 1)
Quarter: 2024Q3

REPORT INFORMATION
  Report Type: Spontaneous
  Country: SB (occurrence: SB)
  Receive Date: 20240903
  Receipt Date: 20240903
  Transmission Date: 20241017
  Serious: Yes (Death)
  Sender: PFIZER
  Company Number: SB-PFIZER INC-PV202400113986

PATIENT
  Age: 10 Year

DRUGS (2)
  1. AZITHROMYCIN [Suspect]
     Active Substance: AZITHROMYCIN
     Dosage: UNK
  2. IVERMECTIN [Suspect]
     Active Substance: IVERMECTIN
     Dosage: UNK

REACTIONS (1)
  - Death [Fatal]
